FAERS Safety Report 9112390 (Version 1)
Quarter: 2013Q1

REPORT INFORMATION
  Report Type: Spontaneous
  Country: US (occurrence: US)
  Receive Date: 20130219
  Receipt Date: 20130219
  Transmission Date: 20140127
  Serious: No
  Sender: FDA-Public Use
  Company Number: US-BRISTOL-MYERS SQUIBB COMPANY-16856734

PATIENT
  Age: 69 Year
  Sex: Male
  Weight: 81.63 kg

DRUGS (3)
  1. ORENCIA [Suspect]
     Indication: RHEUMATOID ARTHRITIS
     Dosage: LAST INF:13AUG12.INCRD 1000MG,2D73515,APR15,2D73512,MAR15,2E72686 APR15,2E72658 MAR15,2D7315 APR15
     Route: 042
     Dates: start: 2012
  2. ORENCIA [Suspect]
     Indication: PSORIATIC ARTHROPATHY
     Dosage: LAST INF:13AUG12.INCRD 1000MG,2D73515,APR15,2D73512,MAR15,2E72686 APR15,2E72658 MAR15,2D7315 APR15
     Route: 042
     Dates: start: 2012
  3. REMICADE [Concomitant]

REACTIONS (1)
  - Drug ineffective [Unknown]
